FAERS Safety Report 21240316 (Version 1)
Quarter: 2022Q3

REPORT INFORMATION
  Report Type: Spontaneous
  Country: US (occurrence: None)
  Receive Date: 20220819
  Receipt Date: 20220819
  Transmission Date: 20221026
  Serious: Yes (Other)
  Sender: FDA-Public Use
  Company Number: None

PATIENT
  Age: 76 Year
  Sex: Female
  Weight: 55.34 kg

DRUGS (1)
  1. CLINDAMYCIN HYDROCHLORIDE [Suspect]
     Active Substance: CLINDAMYCIN HYDROCHLORIDE
     Indication: Tooth infection
     Dosage: FREQUENCY : EVERY 8 HOURS;?
     Route: 048
     Dates: start: 20220329, end: 20220401

REACTIONS (1)
  - Spinal pain [None]

NARRATIVE: CASE EVENT DATE: 20220329
